FAERS Safety Report 22615093 (Version 1)
Quarter: 2023Q2

REPORT INFORMATION
  Report Type: Spontaneous
  Country: FR (occurrence: FR)
  Receive Date: 20230619
  Receipt Date: 20230619
  Transmission Date: 20230722
  Serious: Yes (Other)
  Sender: FDA-Public Use
  Company Number: FR-AFSSAPS-BS2023000468

PATIENT
  Age: 24 Year
  Sex: Male

DRUGS (1)
  1. ACETAMINOPHEN [Suspect]
     Active Substance: ACETAMINOPHEN
     Indication: Headache
     Dosage: 4 GRAM(1 TOTAL)4 G EN 4H EN 2 PRISES
     Route: 048
     Dates: start: 20230228, end: 20230228

REACTIONS (3)
  - Vomiting [Recovering/Resolving]
  - Abdominal pain [Recovered/Resolved]
  - Drug abuse [Recovering/Resolving]

NARRATIVE: CASE EVENT DATE: 20230228
